FAERS Safety Report 7457276-6 (Version None)
Quarter: 2011Q2

REPORT INFORMATION
  Report Type: 
  Country: None (occurrence: None)
  Receive Date: 20110504
  Receipt Date: 20110428
  Transmission Date: 20111010
  Serious: Yes (Other)
  Sender: FDA-Public Use
  Company Number: JP-ASTELLAS-2011JP002639

PATIENT
  Age: 57 Year
  Sex: Female
  Weight: 41.5 kg

DRUGS (7)
  1. PREDNISOLONE [Concomitant]
     Dosage: 22.5 MG, UNKNOWN/D
     Route: 048
  2. PROGRAF [Suspect]
     Dosage: 3 MG, UNKNOWN/D
     Route: 048
     Dates: start: 20080701
  3. PREDNISOLONE [Concomitant]
     Route: 048
  4. PREDNISOLONE [Concomitant]
     Dosage: 40 MG, UNKNOWN/D
     Route: 048
  5. METHYLPREDNISOLONE [Concomitant]
     Indication: INTERSTITIAL LUNG DISEASE
     Dosage: 0.5 G, UNKNOWN/D
     Route: 041
  6. PREDNISOLONE [Concomitant]
     Dosage: 20 MG, UNKNOWN/D
     Route: 048
     Dates: start: 20070101
  7. PREDNISOLONE [Concomitant]
     Dosage: 20 MG, UNKNOWN/D
     Route: 048

REACTIONS (3)
  - PNEUMOPERITONEUM [None]
  - GASTROINTESTINAL HYPOMOTILITY [None]
  - PNEUMATOSIS INTESTINALIS [None]
